FAERS Safety Report 11765830 (Version 22)
Quarter: 2020Q4

REPORT INFORMATION
  Report Type: Report from Study
  Country: CO (occurrence: CO)
  Receive Date: 20151121
  Receipt Date: 20201215
  Transmission Date: 20210113
  Serious: Yes (Life-Threatening, Hospitalization, Other)
  Sender: FDA-Public Use
  Company Number: PHHY2015CO152101

PATIENT
  Age: 58 Year
  Sex: Female
  Weight: 63 kg

DRUGS (30)
  1. REVOLADE [Suspect]
     Active Substance: ELTROMBOPAG
     Dosage: 75 MG, UNK
     Route: 048
     Dates: start: 20151110
  2. REVOLADE [Suspect]
     Active Substance: ELTROMBOPAG
     Dosage: 3 DF, QHS
     Route: 048
     Dates: end: 201602
  3. REVOLADE [Suspect]
     Active Substance: ELTROMBOPAG
     Dosage: 50 MG, QD
     Route: 048
  4. ALENDRONATE SODIUM. [Concomitant]
     Active Substance: ALENDRONATE SODIUM
     Indication: PRODUCT USED FOR UNKNOWN INDICATION
     Dosage: 70 MG, QW
     Route: 048
  5. REVOLADE [Suspect]
     Active Substance: ELTROMBOPAG
     Dosage: 3 DF, QD
     Route: 048
  6. REVOLADE [Suspect]
     Active Substance: ELTROMBOPAG
     Dosage: 25 MG, QD
     Route: 048
     Dates: start: 20170608
  7. VERAPAMIL [Concomitant]
     Active Substance: VERAPAMIL HYDROCHLORIDE
     Dosage: 80 MG, Q12H
     Route: 048
  8. CHLORPHENAMINE [Concomitant]
     Active Substance: CHLORPHENIRAMINE MALEATE
     Indication: PRODUCT USED FOR UNKNOWN INDICATION
     Dosage: 5 MG, Q12H
     Route: 048
  9. REVOLADE [Suspect]
     Active Substance: ELTROMBOPAG
     Dosage: 25 MG, QD
     Route: 048
     Dates: start: 201606
  10. REVOLADE [Suspect]
     Active Substance: ELTROMBOPAG
     Dosage: 25 MG, BID (50 MG)
     Route: 065
  11. REVOLADE [Suspect]
     Active Substance: ELTROMBOPAG
     Dosage: 25 MG, Q12H
     Route: 048
  12. LOSARTAN. [Suspect]
     Active Substance: LOSARTAN
     Dosage: UNK, Q12H
     Route: 048
  13. ESOMEPRAZOLE. [Suspect]
     Active Substance: ESOMEPRAZOLE MAGNESIUM
     Indication: GASTRITIS
     Dosage: UNK UNK, QD
     Route: 048
  14. HYDROCHLOROTHIAZIDE. [Concomitant]
     Active Substance: HYDROCHLOROTHIAZIDE
     Indication: HYPERTENSION
     Dosage: 5 MG, Q12H
     Route: 048
  15. REVOLADE [Suspect]
     Active Substance: ELTROMBOPAG
     Indication: IMMUNE THROMBOCYTOPENIA
     Dosage: 25 MG, QD
     Route: 048
     Dates: start: 20151030, end: 201511
  16. LOSARTAN. [Suspect]
     Active Substance: LOSARTAN
     Indication: HYPERTENSION
     Dosage: 25 MG, Q12H
     Route: 048
  17. OMEPRAZOLE. [Concomitant]
     Active Substance: OMEPRAZOLE
     Indication: PRODUCT USED FOR UNKNOWN INDICATION
     Dosage: UNK, QD
     Route: 065
  18. AZATHIOPRINE. [Concomitant]
     Active Substance: AZATHIOPRINE
     Indication: PRODUCT USED FOR UNKNOWN INDICATION
     Dosage: 50 MG, QD
     Route: 065
  19. LORATADINE. [Concomitant]
     Active Substance: LORATADINE
     Indication: PRODUCT USED FOR UNKNOWN INDICATION
     Dosage: 25 MG, QD
     Route: 048
  20. VERAPAMIL [Concomitant]
     Active Substance: VERAPAMIL HYDROCHLORIDE
     Indication: HYPERTENSION
     Dosage: 25 MG, Q12H
     Route: 048
  21. REVOLADE [Suspect]
     Active Substance: ELTROMBOPAG
     Dosage: 2 DF, QD
     Route: 048
     Dates: start: 20151214
  22. REVOLADE [Suspect]
     Active Substance: ELTROMBOPAG
     Dosage: UNK
     Route: 048
     Dates: start: 2019, end: 20200718
  23. LOSARTAN. [Suspect]
     Active Substance: LOSARTAN
     Dosage: 50 MG, BID
     Route: 048
  24. LOSARTAN. [Suspect]
     Active Substance: LOSARTAN
     Dosage: 50 MG, Q12H
     Route: 048
  25. REVOLADE [Suspect]
     Active Substance: ELTROMBOPAG
     Dosage: 25 MG, QOD
     Route: 048
  26. REVOLADE [Suspect]
     Active Substance: ELTROMBOPAG
     Dosage: 25 MG, QD
     Route: 048
  27. REVOLADE [Suspect]
     Active Substance: ELTROMBOPAG
     Dosage: 25 MG, QD (STARTED 8 YEARS AGO)
     Route: 048
     Dates: start: 2019, end: 20200722
  28. REVOLADE [Suspect]
     Active Substance: ELTROMBOPAG
     Dosage: 50 MG, QD (TABLET OF 25 MG)
     Route: 048
     Dates: start: 20200723
  29. HYDROCHLOROTHIAZIDE. [Concomitant]
     Active Substance: HYDROCHLOROTHIAZIDE
     Dosage: 25 MG, QD
     Route: 048
  30. CALCIUM [Concomitant]
     Active Substance: CALCIUM
     Indication: PRODUCT USED FOR UNKNOWN INDICATION
     Dosage: UNK UNK, QD
     Route: 048

REACTIONS (20)
  - Coronavirus infection [Recovered/Resolved]
  - Cough [Unknown]
  - Inappropriate schedule of product administration [Unknown]
  - Platelet count decreased [Unknown]
  - Platelet count increased [Unknown]
  - Abdominal distension [Unknown]
  - Headache [Not Recovered/Not Resolved]
  - Blood cholesterol increased [Unknown]
  - Disease recurrence [Unknown]
  - Blood triglycerides increased [Unknown]
  - Haematoma [Recovered/Resolved]
  - Contusion [Unknown]
  - Fear [Unknown]
  - Off label use [Unknown]
  - Feeling of despair [Unknown]
  - Feeling abnormal [Unknown]
  - Mouth haemorrhage [Recovered/Resolved]
  - Anxiety [Unknown]
  - Influenza [Unknown]
  - Abdominal pain [Unknown]

NARRATIVE: CASE EVENT DATE: 20151118
